FAERS Safety Report 8833122 (Version 2)
Quarter: 2012Q4

REPORT INFORMATION
  Report Type: 
  Country: US (occurrence: US)
  Receive Date: 20121010
  Receipt Date: 20121108
  Transmission Date: 20130627
  Serious: Yes (Other)
  Sender: FDA-Public Use
  Company Number: US-AMGEN-USASP2012063642

PATIENT
  Age: 71 Year
  Sex: Female

DRUGS (4)
  1. FILGRASTIM [Suspect]
     Indication: PRODUCT USED FOR UNKNOWN INDICATION
     Dosage: 480 mug, UNK
     Route: 058
     Dates: start: 20010210
  2. RITUXIMAB [Suspect]
     Indication: CHRONIC LYMPHOCYTIC LEUKAEMIA
     Dosage: 650 mg, UNK
  3. ERYTHROPOIETIN [Concomitant]
  4. AMPHOTERICIN B [Concomitant]
     Indication: FUNGAL INFECTION

REACTIONS (9)
  - Pneumonia legionella [Unknown]
  - Neutropenia [Unknown]
  - Incontinence [Unknown]
  - Nausea [Unknown]
  - Asthenia [Unknown]
  - Fatigue [Unknown]
  - Pyrexia [Unknown]
  - Infective glossitis [Unknown]
  - Abdominal pain upper [Unknown]
